FAERS Safety Report 12848004 (Version 1)
Quarter: 2016Q4

REPORT INFORMATION
  Report Type: Spontaneous
  Country: US (occurrence: US)
  Receive Date: 20161014
  Receipt Date: 20161014
  Transmission Date: 20170207
  Serious: No
  Sender: FDA-Public Use
  Company Number: US-JNJFOC-20160824668

PATIENT
  Age: 28 Year
  Sex: Male
  Weight: 90.72 kg

DRUGS (2)
  1. TYLENOL [Suspect]
     Active Substance: ACETAMINOPHEN
     Indication: HEADACHE
     Dosage: 2-3 CAPLETS
     Route: 048
     Dates: start: 201503
  2. TYLENOL [Suspect]
     Active Substance: ACETAMINOPHEN
     Route: 048

REACTIONS (2)
  - Incorrect dose administered [Recovered/Resolved]
  - Balance disorder [Recovered/Resolved]

NARRATIVE: CASE EVENT DATE: 201503
